FAERS Safety Report 18930226 (Version 3)
Quarter: 2021Q2

REPORT INFORMATION
  Report Type: Spontaneous
  Country: US (occurrence: US)
  Receive Date: 20210224
  Receipt Date: 20210407
  Transmission Date: 20210717
  Serious: Yes (Other)
  Sender: FDA-Public Use
  Company Number: US-JNJFOC-20210233150

PATIENT
  Age: 62 Year
  Sex: Female

DRUGS (2)
  1. CABOTEGRAVIR [Suspect]
     Active Substance: CABOTEGRAVIR
     Indication: HIV INFECTION
     Route: 030
     Dates: start: 20180301
  2. RILPIVIRINE [Suspect]
     Active Substance: RILPIVIRINE
     Indication: HIV INFECTION
     Dosage: UNK
     Route: 030
     Dates: start: 20180301

REACTIONS (4)
  - Injection site pain [Unknown]
  - Gastric infection [Not Recovered/Not Resolved]
  - Gastroenteritis viral [Not Recovered/Not Resolved]
  - Malaise [Not Recovered/Not Resolved]
